FAERS Safety Report 5318717-3 (Version None)
Quarter: 2007Q2

REPORT INFORMATION
  Report Type: 
  Country: None (occurrence: None)
  Receive Date: 20070503
  Receipt Date: 20070420
  Transmission Date: 20071010
  Serious: Yes (Hospitalization, Other)
  Sender: FDA-Public Use
  Company Number: 012522

PATIENT
  Age: 50 Year
  Sex: Male

DRUGS (4)
  1. ANTABUSE [Suspect]
     Indication: ALCOHOLISM
     Dosage: SEE IMAGE
  2. ETHYL LOFLAZEPATE (ETYL LOFLAZEPATE) [Suspect]
     Dosage: 3 MG/DAY
  3. IFENPRODIL TARTRATE(IFENPRODIL TARTRATE) [Suspect]
     Dosage: 60 MG/DAY
  4. CYANAMIDE(CALCICUM CARBIMIDE) [Suspect]
     Indication: ALCOHOLISM
     Dosage: 70 MG

REACTIONS (24)
  - ALANINE AMINOTRANSFERASE INCREASED [None]
  - ALTERED STATE OF CONSCIOUSNESS [None]
  - ASPARTATE AMINOTRANSFERASE INCREASED [None]
  - ASTHENIA [None]
  - BLOOD PRESSURE INCREASED [None]
  - CEREBRAL ATROPHY [None]
  - CONFUSIONAL STATE [None]
  - COORDINATION ABNORMAL [None]
  - DELIRIUM [None]
  - DELUSION [None]
  - DISORIENTATION [None]
  - DIZZINESS [None]
  - ELECTROENCEPHALOGRAM ABNORMAL [None]
  - ESSENTIAL HYPERTENSION [None]
  - FATIGUE [None]
  - GAIT DISTURBANCE [None]
  - GAMMA-GLUTAMYLTRANSFERASE INCREASED [None]
  - GENERAL PHYSICAL HEALTH DETERIORATION [None]
  - HEPATIC FUNCTION ABNORMAL [None]
  - INCOHERENT [None]
  - JUDGEMENT IMPAIRED [None]
  - MEMORY IMPAIRMENT [None]
  - MUSCULAR WEAKNESS [None]
  - PRESSURE OF SPEECH [None]
